FAERS Safety Report 9615287 (Version 2)
Quarter: 2013Q4

REPORT INFORMATION
  Report Type: Spontaneous
  Country: US (occurrence: US)
  Receive Date: 20131011
  Receipt Date: 20131011
  Transmission Date: 20140711
  Serious: No
  Sender: FDA-Public Use
  Company Number: US-PURDUE-USA-2013-0097423

PATIENT
  Age: 79 Year
  Sex: Female

DRUGS (16)
  1. BUTRANS [Suspect]
     Indication: ARTHRALGIA
     Dosage: 5 MCG, 1/WEEK
     Route: 062
     Dates: start: 201211, end: 20121208
  2. BUTRANS [Suspect]
     Indication: MUSCULOSKELETAL DISCOMFORT
     Dosage: (TWO PATCHES 10 MCG), 1/WEEK
     Route: 062
     Dates: start: 20121208, end: 20121231
  3. BUTRANS [Suspect]
     Dosage: 20 MCG, 1/WEEK
     Route: 062
     Dates: start: 20130114
  4. GLIPIZIDE [Concomitant]
     Indication: PRODUCT USED FOR UNKNOWN INDICATION
     Dosage: 5 MG, QD PRN
     Route: 048
  5. WARFARIN                           /00014802/ [Concomitant]
     Indication: PRODUCT USED FOR UNKNOWN INDICATION
     Dosage: (5MG 5 TIMES A WEEK AND 2.5MG 2 TIMES A WEEK)
     Route: 048
  6. METOPROLOL                         /00376902/ [Concomitant]
     Indication: PRODUCT USED FOR UNKNOWN INDICATION
     Dosage: 100 MG, BID
     Route: 048
  7. DIGOXIN [Concomitant]
     Indication: PRODUCT USED FOR UNKNOWN INDICATION
     Dosage: 125 MG, QD PRN
     Route: 048
  8. LASIX                              /00032601/ [Concomitant]
     Indication: PRODUCT USED FOR UNKNOWN INDICATION
     Dosage: 20 MG, BID
     Route: 048
  9. LISINOPRIL [Concomitant]
     Indication: PRODUCT USED FOR UNKNOWN INDICATION
     Dosage: 10 MG, QD PRN
     Route: 048
  10. ACETYLSALICYLIC ACID [Concomitant]
     Indication: PRODUCT USED FOR UNKNOWN INDICATION
     Dosage: 81 MG, QD PRN
     Route: 048
  11. POTASSIUM [Concomitant]
     Indication: PRODUCT USED FOR UNKNOWN INDICATION
     Dosage: 20 MEQ, QD PRN
     Route: 048
  12. SPIRONOLACTONE [Concomitant]
     Indication: PRODUCT USED FOR UNKNOWN INDICATION
     Dosage: 25 MG, QD PRN
     Route: 048
  13. ZOLOFT [Concomitant]
     Indication: PRODUCT USED FOR UNKNOWN INDICATION
     Dosage: 150 MG, QD PRN
     Route: 048
  14. ADVAIR [Concomitant]
     Indication: CARDIAC FAILURE
     Dosage: 1 TO 2 PUFFS (250/50), BID
     Route: 055
  15. ADVAIR [Concomitant]
     Indication: PULMONARY FUNCTION TEST DECREASED
  16. SPIRIVA [Concomitant]
     Indication: PRODUCT USED FOR UNKNOWN INDICATION
     Dosage: 18 MCG (1 TO 2 PUFFS), QD PRN
     Route: 055

REACTIONS (2)
  - Inadequate analgesia [Not Recovered/Not Resolved]
  - Extra dose administered [Recovered/Resolved]
